FAERS Safety Report 11543784 (Version 1)
Quarter: 2015Q3

REPORT INFORMATION
  Report Type: Spontaneous
  Country: US (occurrence: US)
  Receive Date: 20150924
  Receipt Date: 20150924
  Transmission Date: 20151125
  Serious: No
  Sender: FDA-Public Use
  Company Number: US-ASTRAZENECA-2015SE89256

PATIENT
  Sex: Male
  Weight: 81.6 kg

DRUGS (1)
  1. BRILINTA [Suspect]
     Active Substance: TICAGRELOR
     Indication: CARDIOVASCULAR EVENT PROPHYLAXIS
     Dosage: DOSE AND FREQUENCY UNKNOWN
     Route: 048
     Dates: start: 2015, end: 2015

REACTIONS (2)
  - Drug ineffective [Unknown]
  - Respiratory disorder [Unknown]
